FAERS Safety Report 5271625-9 (Version None)
Quarter: 2007Q1

REPORT INFORMATION
  Report Type: 
  Country: None (occurrence: None)
  Receive Date: 20070321
  Receipt Date: 20070315
  Transmission Date: 20070707
  Serious: Yes (Life-Threatening, Hospitalization, Other)
  Sender: FDA-Public Use
  Company Number: GB-MERCK-0702GBR00088

PATIENT
  Age: 78 Year
  Sex: Female
  Weight: 70 kg

DRUGS (6)
  1. ZOCOR [Suspect]
     Indication: HYPERCHOLESTEROLAEMIA
     Route: 048
     Dates: start: 20050801, end: 20070130
  2. FUSIDIC ACID [Suspect]
     Indication: SURGERY
     Route: 048
     Dates: start: 20070101, end: 20070130
  3. BENDROFLUMETHIAZIDE [Concomitant]
     Indication: HYPERTENSION
     Route: 048
     Dates: start: 20020109
  4. DIHYDROCODEINE [Concomitant]
     Indication: PAIN
     Route: 048
  5. RANITIDINE [Concomitant]
     Route: 048
  6. VERAPAMIL [Concomitant]
     Indication: HYPERTENSION
     Route: 048
     Dates: start: 20040603

REACTIONS (9)
  - ASTHENIA [None]
  - BLOOD CREATINE PHOSPHOKINASE INCREASED [None]
  - DRUG INTERACTION [None]
  - FATIGUE [None]
  - GAIT DISTURBANCE [None]
  - MYOPATHY [None]
  - PARAPARESIS [None]
  - RHABDOMYOLYSIS [None]
  - SENSATION OF HEAVINESS [None]
